FAERS Safety Report 19691321 (Version 1)
Quarter: 2021Q3

REPORT INFORMATION
  Report Type: Spontaneous
  Country: US (occurrence: US)
  Receive Date: 20210812
  Receipt Date: 20210812
  Transmission Date: 20211014
  Serious: Yes (Hospitalization, Other)
  Sender: FDA-Public Use
  Company Number: None

PATIENT
  Age: 31 Year
  Sex: Female
  Weight: 63 kg

DRUGS (1)
  1. EMGALITY [Suspect]
     Active Substance: GALCANEZUMAB-GNLM
     Indication: MIGRAINE
     Dosage: ?          QUANTITY:1 INJECTION(S);OTHER FREQUENCY:MONTHLY;?
     Route: 058
     Dates: start: 20210708

REACTIONS (10)
  - Mastocytoma [None]
  - Injection site reaction [None]
  - Vomiting [None]
  - Rash [None]
  - Hypotension [None]
  - Angioedema [None]
  - Diarrhoea [None]
  - Anaemia [None]
  - Balance disorder [None]
  - Asthma [None]

NARRATIVE: CASE EVENT DATE: 20210709
